FAERS Safety Report 15500474 (Version 1)
Quarter: 2018Q4

REPORT INFORMATION
  Report Type: Spontaneous
  Country: US (occurrence: US)
  Receive Date: 20181015
  Receipt Date: 20181015
  Transmission Date: 20190205
  Serious: Yes (Disabling)
  Sender: FDA-Public Use
  Company Number: None

PATIENT
  Age: 52 Year
  Sex: Female
  Weight: 65.25 kg

DRUGS (10)
  1. PANTOPRAZOLE [Concomitant]
     Active Substance: PANTOPRAZOLE
  2. OCREVUS [Suspect]
     Active Substance: OCRELIZUMAB
     Indication: MULTIPLE SCLEROSIS
     Dosage: ?          OTHER FREQUENCY:INFUSION EVERY SIX;?
     Route: 042
     Dates: start: 20180511
  3. BACLOFEN PUMP [Concomitant]
     Active Substance: BACLOFEN
  4. PRUSTAQ [Concomitant]
  5. LYRICA [Concomitant]
     Active Substance: PREGABALIN
  6. OXYCODONE [Concomitant]
     Active Substance: OXYCODONE
  7. TRAZODONE [Concomitant]
     Active Substance: TRAZODONE HYDROCHLORIDE
  8. TAMULSIFEN [Concomitant]
  9. SUCRALFATE. [Concomitant]
     Active Substance: SUCRALFATE
  10. GABAPENTIN. [Concomitant]
     Active Substance: GABAPENTIN

REACTIONS (8)
  - Pain in extremity [None]
  - Gastritis [None]
  - Oropharyngeal pain [None]
  - Burning sensation [None]
  - Serum sickness [None]
  - Pain [None]
  - Stomatitis [None]
  - Tongue eruption [None]

NARRATIVE: CASE EVENT DATE: 20180525
